FAERS Safety Report 23430996 (Version 2)
Quarter: 2024Q1

REPORT INFORMATION
  Report Type: Report from Study
  Country: JP (occurrence: JP)
  Receive Date: 20240123
  Receipt Date: 20240308
  Transmission Date: 20240409
  Serious: Yes (Hospitalization)
  Sender: FDA-Public Use
  Company Number: JP-INSMED, INC.-2023-03772-JP

PATIENT
  Age: 79 Year
  Sex: Female

DRUGS (1)
  1. ARIKAYCE [Suspect]
     Active Substance: AMIKACIN
     Indication: Mycobacterium avium complex infection
     Dosage: 590 MILLIGRAM, QD
     Route: 055
     Dates: start: 20230921, end: 20231204

REACTIONS (7)
  - Hospitalisation [Unknown]
  - Sleep deficit [Unknown]
  - Physical deconditioning [Unknown]
  - Dysphonia [Not Recovered/Not Resolved]
  - Product packaging difficult to open [Unknown]
  - Device maintenance issue [Unknown]
  - Therapy interrupted [Unknown]

NARRATIVE: CASE EVENT DATE: 20230901
